FAERS Safety Report 9109349 (Version 2)
Quarter: 2013Q2

REPORT INFORMATION
  Report Type: Spontaneous
  Country: BR (occurrence: BR)
  Receive Date: 20130222
  Receipt Date: 20130429
  Transmission Date: 20140414
  Serious: Yes (Other)
  Sender: FDA-Public Use
  Company Number: PHHY2013BR017363

PATIENT
  Sex: Female
  Weight: 80 kg

DRUGS (1)
  1. VOLTAREN [Suspect]
     Indication: BONE PAIN
     Dosage: 50 MG, UP TO 3 SUPPOSITORIES, PRN
     Route: 054

REACTIONS (6)
  - Intervertebral disc protrusion [Unknown]
  - Weight increased [Not Recovered/Not Resolved]
  - Pain [Unknown]
  - Proctalgia [Not Recovered/Not Resolved]
  - Bone pain [Not Recovered/Not Resolved]
  - Wrong technique in drug usage process [Unknown]
